FAERS Safety Report 5153823-8 (Version None)
Quarter: 2006Q4

REPORT INFORMATION
  Report Type: 
  Country: None (occurrence: None)
  Receive Date: 20061120
  Receipt Date: 20061110
  Transmission Date: 20070319
  Serious: Yes (Hospitalization)
  Sender: FDA-Public Use
  Company Number: 2006UW23445

PATIENT
  Age: 74 Year
  Sex: Male
  Weight: 64 kg

DRUGS (9)
  1. IRESSA [Suspect]
     Indication: PROSTATE CANCER
     Route: 048
     Dates: start: 20060901, end: 20060926
  2. ETOPOSIDE [Suspect]
     Indication: PROSTATE CANCER
     Route: 048
     Dates: start: 20060901, end: 20060910
  3. PROCHLORPERARINE [Concomitant]
  4. PREDNISONE TAB [Concomitant]
  5. ALTACE [Concomitant]
  6. STOOL SOFTENER [Concomitant]
  7. GLYBURIDE [Concomitant]
  8. FENTANYL TRANSDERMAL SYSTEM [Concomitant]
  9. INSULIN [Concomitant]

REACTIONS (3)
  - ASTHENIA [None]
  - FEBRILE NEUTROPENIA [None]
  - HAEMOGLOBIN DECREASED [None]
